FAERS Safety Report 9995714 (Version 1)
Quarter: 2014Q1

REPORT INFORMATION
  Report Type: Spontaneous
  Country: GB (occurrence: None)
  Receive Date: 20140307
  Receipt Date: 20140307
  Transmission Date: 20141002
  Serious: Yes (Other)
  Sender: FDA-Public Use
  Company Number: GB-DEXPHARM-20140073

PATIENT
  Age: 66 Year
  Sex: Male

DRUGS (10)
  1. TARDISC XL [Suspect]
     Indication: ANGINA PECTORIS
     Route: 048
     Dates: start: 20140214, end: 20140214
  2. ALLOPURINOL [Concomitant]
  3. AMLODIPIN [Concomitant]
  4. BISOPROLOL [Concomitant]
  5. DOXAZOSIN [Concomitant]
  6. LANSOPRAZOLE [Concomitant]
  7. LISINOPRIL [Concomitant]
  8. SERETIDE [Concomitant]
  9. SIMVASTATIN [Concomitant]
  10. SPIRONOLACTONE [Concomitant]

REACTIONS (2)
  - Myalgia [None]
  - Muscle spasms [None]
